FAERS Safety Report 4429370-5 (Version None)
Quarter: 2004Q3

REPORT INFORMATION
  Report Type: 
  Country: None (occurrence: None)
  Receive Date: 20040818
  Receipt Date: 20040818
  Transmission Date: 20050211
  Serious: Yes (Life-Threatening, Hospitalization, Other)
  Sender: FDA-Public Use
  Company Number: None

PATIENT
  Age: 60 Year
  Sex: Female
  Weight: 90.9 kg

DRUGS (3)
  1. ANGIOMAX [Suspect]
     Indication: STENT PLACEMENT
     Dosage: BOLUS 0.75 MG/KG IV
     Route: 040
     Dates: start: 20040815
  2. TAXOL [Concomitant]
  3. ANGIOMAX [Suspect]
     Indication: ACUTE MYOCARDIAL INFARCTION
     Dosage: DRIP 1.75 MG/KG/ OR IV
     Route: 042

REACTIONS (2)
  - CARDIO-RESPIRATORY ARREST [None]
  - THROMBOSIS [None]
